FAERS Safety Report 14423485 (Version 1)
Quarter: 2018Q1

REPORT INFORMATION
  Report Type: Spontaneous
  Country: FR (occurrence: FR)
  Receive Date: 20180123
  Receipt Date: 20180123
  Transmission Date: 20180509
  Serious: Yes (Hospitalization)
  Sender: FDA-Public Use
  Company Number: FR-TEVA-2018-FR-847417

PATIENT
  Age: 84 Year
  Sex: Female

DRUGS (9)
  1. ALPRAZOLAM. [Suspect]
     Active Substance: ALPRAZOLAM
     Route: 048
     Dates: start: 20170504, end: 20171001
  2. DOLIPRANE [Concomitant]
     Active Substance: ACETAMINOPHEN
     Route: 048
     Dates: start: 20170603, end: 20171001
  3. ATENOLOL. [Concomitant]
     Active Substance: ATENOLOL
     Indication: HYPERTENSION
     Route: 048
     Dates: start: 20160603, end: 20171001
  4. BACLOFENE [Suspect]
     Active Substance: BACLOFEN
     Route: 048
     Dates: start: 20160603, end: 20171001
  5. PLAVIX 75 MG, COMPRIM? PELLICUL? [Concomitant]
     Route: 048
     Dates: start: 20160603, end: 20171001
  6. SEROPRAM (CITALOPRAM HYDROBROMIDE) [Suspect]
     Active Substance: CITALOPRAM HYDROBROMIDE
     Route: 048
     Dates: start: 20160603, end: 20171001
  7. LYRICA [Suspect]
     Active Substance: PREGABALIN
     Route: 048
     Dates: start: 20160603, end: 20171001
  8. SERESTA 10 MG, COMPRIM? [Suspect]
     Active Substance: OXAZEPAM
     Route: 048
     Dates: start: 20160603, end: 20171001
  9. LANZOR 30 MG, MICROGRANULES GASTROR?SISTANTS EN G?LULE [Concomitant]
     Indication: GASTROOESOPHAGEAL REFLUX DISEASE
     Route: 048
     Dates: start: 20160603, end: 20171001

REACTIONS (1)
  - Tonic clonic movements [Recovered/Resolved]

NARRATIVE: CASE EVENT DATE: 20171005
